FAERS Safety Report 17229898 (Version 2)
Quarter: 2020Q1

REPORT INFORMATION
  Report Type: Spontaneous
  Country: IT (occurrence: IT)
  Receive Date: 20200103
  Receipt Date: 20200213
  Transmission Date: 20200409
  Serious: Yes (Other)
  Sender: FDA-Public Use
  Company Number: IT-MYLANLABS-2020M1000064

PATIENT
  Age: 5 Month
  Sex: Female

DRUGS (5)
  1. CYCLOSPORIN [Concomitant]
     Active Substance: CYCLOSPORINE
     Indication: AUTOIMMUNE HAEMOLYTIC ANAEMIA
     Dosage: 2 MILLIGRAM/KILOGRAM, QD (2 MG/KG, QD)
     Route: 065
  2. CYCLOSPORIN [Concomitant]
     Active Substance: CYCLOSPORINE
     Dosage: 4 MILLIGRAM/KILOGRAM, QD (4 MG/KG, QD)
     Route: 065
  3. RITUXIMAB. [Concomitant]
     Active Substance: RITUXIMAB
     Indication: AUTOIMMUNE HAEMOLYTIC ANAEMIA
     Dosage: 375 MILLIGRAM/SQ. METER (375 MG/M2, UNK)
     Route: 065
  4. RITUXIMAB. [Concomitant]
     Active Substance: RITUXIMAB
     Dosage: UNK (EVERY 4 WEEKLY DOSES)
     Route: 065
  5. PREDNISONE. [Suspect]
     Active Substance: PREDNISONE
     Indication: AUTOIMMUNE HAEMOLYTIC ANAEMIA
     Dosage: 4 MILLIGRAM/KILOGRAM, QD (4 MG/KG, QD)
     Route: 065

REACTIONS (10)
  - Immune thrombocytopenic purpura [Recovering/Resolving]
  - CD4 lymphocytes increased [Unknown]
  - Autoimmune haemolytic anaemia [Recovering/Resolving]
  - Lymphoproliferative disorder [Unknown]
  - Disease progression [Recovering/Resolving]
  - CD8 lymphocytes increased [Unknown]
  - Disease recurrence [Unknown]
  - Therapy non-responder [Recovering/Resolving]
  - Cushingoid [Recovered/Resolved]
  - Drug ineffective [Unknown]
